FAERS Safety Report 6735147-8 (Version None)
Quarter: 2010Q2

REPORT INFORMATION
  Report Type: 
  Country: None (occurrence: None)
  Receive Date: 20100521
  Receipt Date: 20100519
  Transmission Date: 20101027
  Serious: Yes (Life-Threatening)
  Sender: FDA-Public Use
  Company Number: GB-JNJFOC-20100507340

PATIENT
  Age: 74 Year
  Sex: Male
  Weight: 106 kg

DRUGS (5)
  1. ACETAMINOPHEN W/ CODEINE [Suspect]
     Indication: BACK PAIN
     Route: 065
  2. INDAPAMIDE [Concomitant]
     Indication: HYPERTENSION
     Route: 065
  3. OMEPRAZOLE [Concomitant]
     Indication: DYSPEPSIA
     Route: 065
  4. SIMVASTATIN [Concomitant]
     Indication: PROPHYLAXIS
     Route: 065
  5. VALSARTAN [Concomitant]
     Indication: HYPERTENSION
     Route: 065

REACTIONS (1)
  - DEEP VEIN THROMBOSIS [None]
